FAERS Safety Report 26114186 (Version 1)
Quarter: 2025Q4

REPORT INFORMATION
  Report Type: Spontaneous
  Country: AU (occurrence: AU)
  Receive Date: 20251202
  Receipt Date: 20251202
  Transmission Date: 20260118
  Serious: Yes (Other)
  Sender: PFIZER
  Company Number: AU-PFIZER INC-PV202500139376

PATIENT

DRUGS (1)
  1. ELRANATAMAB [Suspect]
     Active Substance: ELRANATAMAB
     Dosage: 76 MG (7TH DOSE)

REACTIONS (2)
  - Peroneal nerve palsy [Unknown]
  - Neuropathy peripheral [Unknown]
